FAERS Safety Report 4514925-X (Version None)
Quarter: 2004Q4

REPORT INFORMATION
  Report Type: 
  Country: None (occurrence: None)
  Receive Date: 20041201
  Receipt Date: 20041018
  Transmission Date: 20050328
  Serious: Yes (Hospitalization, Other)
  Sender: FDA-Public Use
  Company Number: AU-BRISTOL-MYERS SQUIBB COMPANY-12733861

PATIENT
  Sex: Female

DRUGS (4)
  1. HYDREA [Suspect]
     Indication: ESSENTIAL THROMBOCYTHAEMIA
     Dosage: 500 MG DAILY COMMENCED IN MAY 2000. ^5 GRAM TO 20 GRAM^ ADMINISTERED ON 17-OCT-2004
     Route: 048
     Dates: start: 20041017, end: 20041017
  2. LAMOTRIGINE [Suspect]
     Route: 048
     Dates: end: 20041017
  3. ROFECOXIB [Suspect]
     Dates: end: 20041017
  4. TEMAZEPAM [Suspect]
     Dates: end: 20041017

REACTIONS (2)
  - OVERDOSE [None]
  - RESPIRATORY DISTRESS [None]
